APPROVED DRUG PRODUCT: CYSTARAN
Active Ingredient: CYSTEAMINE HYDROCHLORIDE
Strength: EQ 0.44% BASE
Dosage Form/Route: SOLUTION/DROPS;OPHTHALMIC
Application: N200740 | Product #001
Applicant: LEADIANT BIOSCIENCES INC
Approved: Oct 2, 2012 | RLD: Yes | RS: Yes | Type: RX